FAERS Safety Report 6017972-4 (Version None)
Quarter: 2008Q4

REPORT INFORMATION
  Report Type: 
  Country: None (occurrence: None)
  Receive Date: 20081223
  Receipt Date: 20081222
  Transmission Date: 20090506
  Serious: Yes (Other)
  Sender: FDA-Public Use
  Company Number: A0734589A

PATIENT
  Sex: Male
  Weight: 109.1 kg

DRUGS (14)
  1. AVANDIA [Suspect]
     Dosage: 4MG TWICE PER DAY
     Route: 048
     Dates: start: 20040801, end: 20071001
  2. ISOSORBIDE DINITRATE [Concomitant]
  3. LIPITOR [Concomitant]
  4. METOPROLOL [Concomitant]
  5. TOPROL-XL [Concomitant]
  6. LISINOPRIL [Concomitant]
  7. ASTELIN [Concomitant]
  8. CIMETIDINE [Concomitant]
     Dosage: 400MG THREE TIMES PER DAY
  9. FLONASE [Concomitant]
  10. GLYBURIDE [Concomitant]
  11. SINGULAIR [Concomitant]
     Dosage: 10MG PER DAY
  12. ADVICOR [Concomitant]
  13. PULMICORT-100 [Concomitant]
  14. LASIX [Concomitant]
     Dosage: 20MG AS REQUIRED

REACTIONS (5)
  - ANXIETY [None]
  - CORONARY ARTERY DISEASE [None]
  - HEART INJURY [None]
  - MYOCARDIAL INFARCTION [None]
  - PAIN [None]
